FAERS Safety Report 12290224 (Version 2)
Quarter: 2016Q2

REPORT INFORMATION
  Report Type: Report from Study
  Country: FI (occurrence: FI)
  Receive Date: 20160421
  Receipt Date: 20160427
  Transmission Date: 20160815
  Serious: No
  Sender: FDA-Public Use
  Company Number: FI-ABBVIE-16P-055-1606464-00

PATIENT
  Age: 81 Year
  Sex: Male

DRUGS (1)
  1. DUODOPA [Suspect]
     Active Substance: CARBIDOPA\LEVODOPA
     Indication: PARKINSON^S DISEASE
     Dosage: MD 7ML; CD 2.6; ED 2ML; 16 H TREATMENT
     Route: 050

REACTIONS (3)
  - Dysphagia [Unknown]
  - Dysphagia [Unknown]
  - Aspiration [Unknown]

NARRATIVE: CASE EVENT DATE: 201508
